FAERS Safety Report 19151771 (Version 1)
Quarter: 2021Q2

REPORT INFORMATION
  Report Type: Report from Study
  Country: None (occurrence: US)
  Receive Date: 20210419
  Receipt Date: 20210419
  Transmission Date: 20210717
  Serious: Yes (Other)
  Sender: FDA-Public Use
  Company Number: US-ABBVIE-18K-163-2533285-00

PATIENT
  Age: 40 Year
  Sex: Female

DRUGS (3)
  1. COVID?19 VACCINE NOS. [Concomitant]
     Active Substance: COVID-19 VACCINE NOS
     Indication: COVID-19 IMMUNISATION
     Dosage: JOHNSON AND JOHNSON^S
     Route: 030
     Dates: start: 20210411, end: 20210411
  2. PANTOPRAZOLE [Concomitant]
     Active Substance: PANTOPRAZOLE
     Indication: DYSPEPSIA
  3. HUMIRA [Suspect]
     Active Substance: ADALIMUMAB
     Indication: CROHN^S DISEASE
     Route: 058
     Dates: start: 2016

REACTIONS (13)
  - Gestational diabetes [Recovered/Resolved]
  - Peripheral swelling [Unknown]
  - Normal newborn [Unknown]
  - Vulvovaginal mycotic infection [Recovered/Resolved]
  - Procedural pain [Recovered/Resolved]
  - Exposure during pregnancy [Unknown]
  - Weight decreased [Unknown]
  - Abdominal distension [Unknown]
  - Fungal skin infection [Recovered/Resolved]
  - Heavy menstrual bleeding [Recovered/Resolved]
  - Dyspepsia [Unknown]
  - Feeling abnormal [Unknown]
  - Suture rupture [Unknown]

NARRATIVE: CASE EVENT DATE: 201904
